FAERS Safety Report 8198451-5 (Version None)
Quarter: 2012Q1

REPORT INFORMATION
  Report Type: 
  Country: None (occurrence: None)
  Receive Date: 20120309
  Receipt Date: 20111202
  Transmission Date: 20120608
  Serious: No
  Sender: FDA-Public Use
  Company Number: US-AMGEN-USASP2011054493

PATIENT
  Age: 59 Year
  Sex: Female
  Weight: 55 kg

DRUGS (22)
  1. DIAZEPAM [Concomitant]
     Dosage: 5 MG, TID
     Route: 048
  2. ERGOCALCIFEROL [Concomitant]
     Route: 048
  3. VITAMIN D [Concomitant]
     Dosage: UNK UNK, QWK
     Route: 048
  4. SEROQUEL [Concomitant]
     Dosage: 400 MG, QHS
  5. COMPAZINE [Concomitant]
     Route: 048
  6. FORTEO [Concomitant]
     Route: 058
  7. TRAZODONE HCL [Concomitant]
     Dosage: 50 MG, QHS
     Route: 048
  8. ZANTAC [Concomitant]
     Dosage: 300 MG, QD
  9. BENZONATATE [Concomitant]
     Dosage: 100 MG, PRN
     Route: 048
  10. CITALOPRAM HYDROBROMIDE [Concomitant]
     Dosage: 40 MG, QD
     Route: 048
  11. REGLAN [Concomitant]
     Dosage: 10 MG, PRN
     Route: 048
  12. PROAIR HFA [Concomitant]
     Dosage: 108 MUG, UNK
  13. LIPITOR [Concomitant]
     Dosage: 10 MG, QD
     Route: 048
  14. ALBUTEROL SULFATE [Concomitant]
     Dosage: UNK
  15. MIDRIN [Concomitant]
     Dosage: 100 MG, QD
     Route: 048
  16. AMBIEN [Concomitant]
     Dosage: 10 MG, QHS
     Route: 048
  17. HYDROXYZINE HCL [Concomitant]
     Dosage: 25 MG, PRN
     Route: 048
  18. ULTRACET [Concomitant]
     Dosage: 325 MG, PRN
     Route: 048
  19. COUMADIN [Concomitant]
     Route: 048
  20. PROCHLORPERAZINE MALEATE [Concomitant]
     Dosage: 10 MG, PRN
     Route: 048
  21. PROLIA [Suspect]
     Indication: OSTEOPOROSIS POSTMENOPAUSAL
     Dosage: 60 MG, Q6MO
     Route: 058
     Dates: start: 20110826
  22. SOMA [Concomitant]
     Dosage: 350 MG, Q8H
     Route: 048

REACTIONS (8)
  - PLEURISY [None]
  - MUSCLE STRAIN [None]
  - TREMOR [None]
  - FEELING COLD [None]
  - FALL [None]
  - MUSCULOSKELETAL CHEST PAIN [None]
  - PATELLA FRACTURE [None]
  - HYPERHIDROSIS [None]
